FAERS Safety Report 4834201-5 (Version None)
Quarter: 2005Q4

REPORT INFORMATION
  Report Type: 
  Country: None (occurrence: None)
  Receive Date: 20051122
  Receipt Date: 20051114
  Transmission Date: 20060501
  Serious: Yes (Hospitalization)
  Sender: FDA-Public Use
  Company Number: GR-AVENTIS-200520030GDDC

PATIENT
  Sex: Female

DRUGS (3)
  1. TELITHROMYCIN [Suspect]
     Indication: INFLAMMATION
     Route: 048
     Dates: start: 20051113, end: 20051113
  2. NIMESULIDE [Concomitant]
  3. CAPTOPRIL [Concomitant]
     Indication: HYPERTENSION

REACTIONS (4)
  - HYPERTENSION [None]
  - HYPOTONIA [None]
  - SYNCOPE [None]
  - VISION BLURRED [None]
